FAERS Safety Report 8952254 (Version 1)
Quarter: 2012Q4

REPORT INFORMATION
  Report Type: 
  Country: DE (occurrence: DE)
  Receive Date: 20121204
  Receipt Date: 20121204
  Transmission Date: 20130627
  Serious: Yes (Hospitalization, Other)
  Sender: FDA-Public Use
  Company Number: DE-ELI_LILLY_AND_COMPANY-DE201211007032

PATIENT
  Age: 37 Year
  Sex: Male

DRUGS (3)
  1. ZYPREXA [Suspect]
     Dosage: 10 mg, qd
     Dates: start: 20120321
  2. ZYPREXA [Suspect]
     Dosage: 20 mg, qd
     Route: 048
     Dates: start: 20120322, end: 20120402
  3. DIPIPERON [Concomitant]
     Indication: SCHIZOPHRENIA, PARANOID TYPE
     Dosage: 120 mg, qd
     Route: 048
     Dates: start: 20120321, end: 20120406

REACTIONS (5)
  - Hepatic enzyme increased [Recovering/Resolving]
  - Hepatitis A antibody positive [Unknown]
  - Hepatitis B antibody positive [Unknown]
  - Hepatitis B core antibody positive [Unknown]
  - Hepatitis B surface antigen [Unknown]
